FAERS Safety Report 6123607-2 (Version None)
Quarter: 2009Q1

REPORT INFORMATION
  Report Type: 
  Country: None (occurrence: None)
  Receive Date: 20090319
  Receipt Date: 20090317
  Transmission Date: 20090719
  Serious: Yes (Death)
  Sender: FDA-Public Use
  Company Number: PHHY2009JP09623

PATIENT

DRUGS (1)
  1. ZOMETA [Suspect]
     Indication: MULTIPLE MYELOMA
     Dosage: UNSPECIFIED DOSE EVERY FOUR WEEKS
     Route: 042

REACTIONS (4)
  - EAR INFECTION [None]
  - OSTEOMYELITIS [None]
  - TOOTH EXTRACTION [None]
  - TOOTH INFECTION [None]
